FAERS Safety Report 25390400 (Version 3)
Quarter: 2025Q3

REPORT INFORMATION
  Report Type: Spontaneous
  Country: BR (occurrence: BR)
  Receive Date: 20250603
  Receipt Date: 20250825
  Transmission Date: 20251020
  Serious: Yes (Hospitalization, Other)
  Sender: AMERICAN REGENT
  Company Number: BR-AMERICAN REGENT INC-2025002167

PATIENT
  Age: 81 Year
  Sex: Female
  Weight: 54 kg

DRUGS (9)
  1. VENOFER [Suspect]
     Active Substance: IRON SUCROSE
     Indication: Serum ferritin decreased
     Route: 042
     Dates: start: 2021, end: 2021
  2. VENOFER [Suspect]
     Active Substance: IRON SUCROSE
     Indication: Haemoglobin decreased
     Route: 042
     Dates: start: 2021, end: 2021
  3. VENOFER [Suspect]
     Active Substance: IRON SUCROSE
     Route: 042
     Dates: start: 2021, end: 2021
  4. VENOFER [Suspect]
     Active Substance: IRON SUCROSE
     Route: 042
     Dates: start: 202503
  5. SERTRALINE HYDROCHLORIDE [Concomitant]
     Active Substance: SERTRALINE HYDROCHLORIDE
     Indication: Product used for unknown indication
     Route: 065
     Dates: start: 2017
  6. BENICAR [Concomitant]
     Active Substance: OLMESARTAN MEDOXOMIL
     Indication: Product used for unknown indication
     Route: 065
     Dates: start: 2017
  7. ROSUVASTATIN CALCIUM [Concomitant]
     Active Substance: ROSUVASTATIN CALCIUM
     Indication: Product use in unapproved indication
     Route: 065
     Dates: start: 2017
  8. ASPIRIN\DIHYDROXYALUMINUM AMINOACETATE ANHYDROUS\MAGNESIUM CARBONATE [Concomitant]
     Active Substance: ASPIRIN\DIHYDROXYALUMINUM AMINOACETATE ANHYDROUS\MAGNESIUM CARBONATE
     Indication: Product use in unapproved indication
     Route: 065
     Dates: start: 2017
  9. MIRTAZAPINE [Concomitant]
     Active Substance: MIRTAZAPINE
     Indication: Product use in unapproved indication
     Route: 065

REACTIONS (6)
  - Gastric ulcer haemorrhage [Unknown]
  - Gastrointestinal haemorrhage [Unknown]
  - Anaemia [Unknown]
  - Malaise [Recovered/Resolved]
  - Gastrointestinal injury [Unknown]
  - Drug therapeutic incompatibility [Recovered/Resolved]

NARRATIVE: CASE EVENT DATE: 20210101
